FAERS Safety Report 4876122-8 (Version None)
Quarter: 2006Q1

REPORT INFORMATION
  Report Type: 
  Country: None (occurrence: None)
  Receive Date: 20060106
  Receipt Date: 20060106
  Transmission Date: 20060701
  Serious: Yes (Other)
  Sender: FDA-Public Use
  Company Number: None

PATIENT
  Age: 68 Year
  Sex: Male
  Weight: 81.8289 kg

DRUGS (1)
  1. VICODIN [Suspect]
     Indication: PAIN
     Dosage: 1 - 2 PO Q 6 HRS PRN
     Route: 048
     Dates: start: 20051219, end: 20051227

REACTIONS (4)
  - DRUG EFFECT DECREASED [None]
  - HYPERSENSITIVITY [None]
  - PRURITUS [None]
  - RASH [None]
